FAERS Safety Report 4433964-0 (Version None)
Quarter: 2004Q3

REPORT INFORMATION
  Report Type: 
  Country: None (occurrence: None)
  Receive Date: 20040825
  Receipt Date: 20040806
  Transmission Date: 20050211
  Serious: Yes (Life-Threatening, Other)
  Sender: FDA-Public Use
  Company Number: US_0408104704

PATIENT
  Age: 25 Year
  Sex: Female

DRUGS (1)
  1. SYMBAX-OLANZAPINE / FLUOXETINE (OLA [Suspect]

REACTIONS (1)
  - SUBARACHNOID HAEMORRHAGE [None]
